FAERS Safety Report 22231522 (Version 2)
Quarter: 2023Q2

REPORT INFORMATION
  Report Type: Spontaneous
  Country: AR (occurrence: AR)
  Receive Date: 20230420
  Receipt Date: 20230510
  Transmission Date: 20230722
  Serious: Yes (Hospitalization, Other)
  Sender: FDA-Public Use
  Company Number: AR-PFIZER INC-PV202300051730

PATIENT
  Age: 75 Year
  Sex: Female

DRUGS (1)
  1. ENBREL [Suspect]
     Active Substance: ETANERCEPT
     Indication: Rheumatoid arthritis
     Dosage: 50 MG, WEEKLY
     Route: 065
     Dates: start: 20070505

REACTIONS (2)
  - Cardiac disorder [Unknown]
  - Inappropriate schedule of product administration [Unknown]
